FAERS Safety Report 4734260-4 (Version None)
Quarter: 2005Q3

REPORT INFORMATION
  Report Type: 
  Country: None (occurrence: None)
  Receive Date: 20050721
  Receipt Date: 20050416
  Transmission Date: 20060218
  Serious: No
  Sender: FDA-Public Use
  Company Number: 2005SP000226

PATIENT
  Age: 49 Year
  Sex: Female
  Weight: 65.7716 kg

DRUGS (4)
  1. LUNESTA [Suspect]
     Indication: INSOMNIA
     Dosage: 3 MG; ORAL
     Route: 048
     Dates: start: 20050412, end: 20050418
  2. XANAX [Concomitant]
  3. KLONOPIN [Concomitant]
  4. AMBIEN [Concomitant]

REACTIONS (3)
  - DEPRESSED MOOD [None]
  - DYSGEUSIA [None]
  - INITIAL INSOMNIA [None]
